FAERS Safety Report 16183387 (Version 3)
Quarter: 2019Q2

REPORT INFORMATION
  Report Type: Spontaneous
  Country: DE (occurrence: DE)
  Receive Date: 20190411
  Receipt Date: 20190607
  Transmission Date: 20190711
  Serious: Yes (Death, Hospitalization, Other)
  Sender: FDA-Public Use
  Company Number: PHHY2019DE083070

PATIENT
  Age: 74 Year
  Sex: Male

DRUGS (6)
  1. PEMETREXED DISODIUM [Suspect]
     Active Substance: PEMETREXED DISODIUM
     Dosage: UNK (4 CYCLES CONCOMITANTLY WITH PEMBROLIZUMAB AND CARBOPLATIN, THEN 2 CYCLES WITH PEMBROLIZUMAB/50)
     Route: 065
  2. CARBOPLATIN. [Suspect]
     Active Substance: CARBOPLATIN
     Dosage: UNK (4 CYCLES WITH COMBINATION OF PEMBROLIZUMAB(KEYTRUDA), CARBOPLATIN AND PEMETREXED DISODIUM/AUC )
     Route: 065
  3. KEYTRUDA [Suspect]
     Active Substance: PEMBROLIZUMAB
     Indication: NON-SMALL CELL LUNG CANCER
     Dosage: 200 MG, CYCLIC (RECEIVED 4 CYCLES IN COMBINATION OF CARBOPLATIN)
     Route: 065
  4. KEYTRUDA [Suspect]
     Active Substance: PEMBROLIZUMAB
     Dosage: 200 MG, TIW (200 MILLIGRAM, CYCLICAL, 4 CYCLES WITH CONCOMITANT CARBOPLATIN AND PEMETREXED FOLLOWED)
     Route: 065
     Dates: start: 201811, end: 20190304
  5. PEMETREXED DISODIUM [Suspect]
     Active Substance: PEMETREXED DISODIUM
     Indication: NON-SMALL CELL LUNG CANCER
     Dosage: UNK UNK, CYCLIC (4 CYCLES WITH COMBINATION OF KEYTRUDA AND CARBOPLATIN)
     Route: 065
  6. CARBOPLATIN. [Suspect]
     Active Substance: CARBOPLATIN
     Indication: NON-SMALL CELL LUNG CANCER
     Dosage: UNK UNK, CYCLIC (4 CYCLES WITH COMBINATION OF KEYTRUDA) AND PEMETREXED DISODIUM)
     Route: 065

REACTIONS (11)
  - Brain oedema [Fatal]
  - Cerebral artery thrombosis [Fatal]
  - Staphylococcus test positive [Unknown]
  - Interstitial lung disease [Not Recovered/Not Resolved]
  - Arteriosclerosis [Fatal]
  - Idiopathic pulmonary fibrosis [Fatal]
  - Interstitial lung disease [Unknown]
  - Pyrexia [Not Recovered/Not Resolved]
  - Malignant neoplasm progression [Fatal]
  - Subendocardial ischaemia [Fatal]
  - Condition aggravated [Not Recovered/Not Resolved]

NARRATIVE: CASE EVENT DATE: 201903
